FAERS Safety Report 6172280-6 (Version None)
Quarter: 2009Q2

REPORT INFORMATION
  Report Type: 
  Country: None (occurrence: None)
  Receive Date: 20090429
  Receipt Date: 20090428
  Transmission Date: 20091009
  Serious: No
  Sender: FDA-Public Use
  Company Number: US-B.I. PHARMACEUTICALS,INC./RIDGEFIELD-2009-BP-05261BP

PATIENT
  Sex: Female

DRUGS (3)
  1. ATROVENT HFA [Suspect]
  2. XOPENEX [Suspect]
     Indication: ASTHMA
     Dosage: 45MCG
     Route: 055
     Dates: start: 20090401
  3. XOPENEX [Suspect]
     Indication: BRONCHIECTASIS

REACTIONS (1)
  - MUCOSAL DRYNESS [None]
